FAERS Safety Report 5691078-6 (Version None)
Quarter: 2008Q2

REPORT INFORMATION
  Report Type: 
  Country: None (occurrence: None)
  Receive Date: 20080401
  Receipt Date: 20080320
  Transmission Date: 20081010
  Serious: Yes (Other)
  Sender: FDA-Public Use
  Company Number: PE-PFIZER INC-2008027238

PATIENT
  Age: 22 Year
  Sex: Female

DRUGS (2)
  1. CHAMPIX [Suspect]
     Indication: SMOKING CESSATION THERAPY
     Route: 048
     Dates: start: 20080320, end: 20080320
  2. RIVOTRIL [Concomitant]

REACTIONS (2)
  - HYPERSENSITIVITY [None]
  - PANIC REACTION [None]
